FAERS Safety Report 4378305-2 (Version None)
Quarter: 2004Q2

REPORT INFORMATION
  Report Type: 
  Country: None (occurrence: None)
  Receive Date: 20040601
  Receipt Date: 20040303
  Transmission Date: 20050107
  Serious: No
  Sender: FDA-Public Use
  Company Number: WAES 0403USA00291

PATIENT
  Age: 71 Year
  Sex: Female

DRUGS (11)
  1. ZETIA [Suspect]
     Indication: BLOOD CHOLESTEROL INCREASED
     Dosage: 10 MG/DAILY PO
     Route: 048
     Dates: start: 20030601
  2. ACTOS [Concomitant]
  3. ADVAIR DISKUS 100/50 [Concomitant]
  4. AVAPRO [Concomitant]
  5. CARTIA (DILTIAZEM HYDROCHLORIDE) [Concomitant]
  6. SINTHROID [Concomitant]
  7. ZOCOR [Concomitant]
  8. ATENOLOL [Concomitant]
  9. FUROSEMIDE [Concomitant]
  10. GLYBURIDE [Concomitant]
  11. ISOSORBIDE MONONITRATE [Concomitant]

REACTIONS (2)
  - HAIR TEXTURE ABNORMAL [None]
  - HYPOTRICHOSIS [None]
